FAERS Safety Report 11032747 (Version 3)
Quarter: 2015Q2

REPORT INFORMATION
  Report Type: Spontaneous
  Country: US (occurrence: US)
  Receive Date: 20150415
  Receipt Date: 20150421
  Transmission Date: 20150821
  Serious: Yes (Other)
  Sender: FDA-Public Use
  Company Number: US-SA-2015SA044337

PATIENT
  Age: 63 Year
  Sex: Male

DRUGS (14)
  1. VALPROIC ACID. [Suspect]
     Active Substance: VALPROIC ACID
     Indication: MIGRAINE
     Route: 065
  2. TOPIRAMATE. [Concomitant]
     Active Substance: TOPIRAMATE
     Indication: CLUSTER HEADACHE
  3. VERAPAMIL [Concomitant]
     Active Substance: VERAPAMIL HYDROCHLORIDE
     Indication: HEADACHE
     Route: 065
  4. CLOMIFENE CITRATE [Suspect]
     Active Substance: CLOMIPHENE
     Indication: CLUSTER HEADACHE
     Dosage: CLOMIPHENE CITRATE WAS RESTARTED
     Route: 065
  5. VERAPAMIL [Concomitant]
     Active Substance: VERAPAMIL HYDROCHLORIDE
     Indication: HEADACHE
     Route: 065
  6. CLOMIFENE CITRATE [Suspect]
     Active Substance: CLOMIPHENE
     Indication: CLUSTER HEADACHE
     Route: 065
  7. TOPIRAMATE. [Concomitant]
     Active Substance: TOPIRAMATE
     Indication: CLUSTER HEADACHE
  8. MELATONIN [Concomitant]
     Active Substance: MELATONIN
     Indication: CLUSTER HEADACHE
  9. CLOMIFENE CITRATE [Suspect]
     Active Substance: CLOMIPHENE
     Indication: CLUSTER HEADACHE
     Route: 065
  10. GABAPENTIN. [Suspect]
     Active Substance: GABAPENTIN
     Route: 065
  11. BACLOFEN. [Concomitant]
     Active Substance: BACLOFEN
     Route: 065
  12. VERAPAMIL [Concomitant]
     Active Substance: VERAPAMIL HYDROCHLORIDE
     Indication: HEADACHE
     Route: 065
  13. LITHIUM CARBONATE. [Suspect]
     Active Substance: LITHIUM CARBONATE
     Route: 065
  14. TOPIRAMATE. [Concomitant]
     Active Substance: TOPIRAMATE
     Indication: CLUSTER HEADACHE

REACTIONS (7)
  - Decreased appetite [Unknown]
  - Product use issue [Unknown]
  - Mood altered [Unknown]
  - Drug ineffective [Unknown]
  - Hyperammonaemia [Unknown]
  - Constipation [Unknown]
  - Fatigue [Unknown]
